FAERS Safety Report 6100905-X (Version None)
Quarter: 2009Q1

REPORT INFORMATION
  Report Type: 
  Country: None (occurrence: None)
  Receive Date: 20090220
  Receipt Date: 20090211
  Transmission Date: 20090719
  Serious: Yes (Other)
  Sender: FDA-Public Use
  Company Number: CHPA2009US04436

PATIENT
  Age: 52 Year
  Sex: Female
  Weight: 61.2 kg

DRUGS (7)
  1. VOLTAREN [Suspect]
     Indication: MUSCULOSKELETAL PAIN
     Dosage: 1 G, BID, TOPICAL
     Route: 061
     Dates: start: 20090121, end: 20090124
  2. FLURBIPROFEN [Suspect]
     Indication: BACK PAIN
     Dosage: 100 MG, BID
     Dates: start: 20040101, end: 20090124
  3. FLURBIPROFEN [Suspect]
     Indication: ROAD TRAFFIC ACCIDENT
     Dosage: 100 MG, BID
     Dates: start: 20040101, end: 20090124
  4. THEO-DUR [Concomitant]
  5. ALBUTEROL [Concomitant]
  6. FLEXERIL [Concomitant]
  7. GABAPENTIN [Concomitant]

REACTIONS (6)
  - CAUSTIC INJURY [None]
  - DRUG ADMINISTERED AT INAPPROPRIATE SITE [None]
  - RASH ERYTHEMATOUS [None]
  - SKIN EXFOLIATION [None]
  - SUNBURN [None]
  - WRONG TECHNIQUE IN DRUG USAGE PROCESS [None]
